FAERS Safety Report 6378753-5 (Version None)
Quarter: 2009Q3

REPORT INFORMATION
  Report Type: 
  Country: None (occurrence: None)
  Receive Date: 20090921
  Receipt Date: 20090909
  Transmission Date: 20100115
  Serious: Yes (Hospitalization, Other)
  Sender: FDA-Public Use
  Company Number: CLOF-1000684

PATIENT
  Age: 64 Year
  Sex: Male

DRUGS (31)
  1. CLOLAR [Suspect]
     Dosage: 20 MG/M2, QDX5, INTRAVENOUS
     Route: 042
     Dates: start: 20090808, end: 20090812
  2. ANTI-THYMOCYTE GLOBULIN NOS [Suspect]
     Dosage: 1.5 MG/KG, QDX5, INTRAVENOUS
     Route: 042
     Dates: start: 20090803, end: 20090807
  3. ACETAMINOPHEN [Concomitant]
  4. DIPHENHYDRAMINE HCL [Concomitant]
  5. MEPERIDINE HCL [Concomitant]
  6. ALUMINUM HYDROXIDE TAB [Concomitant]
  7. LOPERAMIDE (LOPERAMIDE) [Concomitant]
  8. MULTIVITAMINS (ASCORBIC ACID, ERGOCALCIFEROL, FOLIC ACID, NICOTINAMIDE [Concomitant]
  9. FOLIC ACID [Concomitant]
  10. ONDANSETRON [Concomitant]
  11. ACYCLOVIR [Concomitant]
  12. FLUCONAZOLE [Concomitant]
  13. HYDROCERIN (PARAFFIN, LIQUID, WOOL ALCOHOLS) [Concomitant]
  14. FILGRASTIM (FILGRASTIM) [Concomitant]
  15. CAPHOSOL (EUSAPHARMA) [Concomitant]
  16. MYCOPHENOLATE MOFETIL [Concomitant]
  17. LORAZEPAM [Concomitant]
  18. SENNA (SENNA ALEXANDRINA) [Concomitant]
  19. LEVOTHYROXINE SODIUM [Concomitant]
  20. TIMOLOL MALEATE [Concomitant]
  21. LIDOCAINE VISCOUS (LIDOCAINE HYDROCHLORIDE) [Concomitant]
  22. OXYCODONE HCL [Concomitant]
  23. GABAPENTIN [Concomitant]
  24. CEFEPIME [Concomitant]
  25. CYCLOSPORINE [Concomitant]
  26. DOCUSATE SODIUM (DOCUSATE SODIUM) [Concomitant]
  27. LIDOCAINE (LIDOCAINE HYDROCHLORIDE) [Concomitant]
  28. VANCOMYCIN [Concomitant]
  29. OXYMETAZOLINE (OXYMETAZOLINE) [Concomitant]
  30. LEVOFLOXACIN [Concomitant]
  31. BACTRIM [Concomitant]

REACTIONS (6)
  - ACUTE GRAFT VERSUS HOST DISEASE IN SKIN [None]
  - BLOOD CREATININE INCREASED [None]
  - MALIGNANT NEOPLASM PROGRESSION [None]
  - MULTIPLE MYELOMA [None]
  - RASH PAPULAR [None]
  - STEM CELL TRANSPLANT [None]
